FAERS Safety Report 10961819 (Version 4)
Quarter: 2015Q3

REPORT INFORMATION
  Report Type: Report from Study
  Country: JP (occurrence: JP)
  Receive Date: 20150327
  Receipt Date: 20150715
  Transmission Date: 20151125
  Serious: Yes (Hospitalization, Other)
  Sender: FDA-Public Use
  Company Number: JP-CELGENE-JPN-2015033882

PATIENT
  Age: 82 Year
  Sex: Female
  Weight: 41.7 kg

DRUGS (68)
  1. LENADEX [Suspect]
     Active Substance: DEXAMETHASONE ACETATE
     Indication: PLASMA CELL MYELOMA
     Route: 065
     Dates: start: 20121022, end: 20150305
  2. ASPIRIN. [Concomitant]
     Active Substance: ASPIRIN
     Indication: ANTICOAGULANT THERAPY
     Route: 048
     Dates: start: 20121107
  3. ALFACALCIDOL [Concomitant]
     Active Substance: ALFACALCIDOL
     Indication: OSTEOPOROSIS
     Route: 048
     Dates: start: 20121012, end: 20131023
  4. CALCIUM L-ASPARTATE HYDRATE [Concomitant]
     Active Substance: ASPARTIC ACID
     Route: 048
     Dates: start: 20130314, end: 20140710
  5. KETOPROFEN. [Concomitant]
     Active Substance: KETOPROFEN
     Indication: SPINAL COMPRESSION FRACTURE
     Route: 062
     Dates: start: 20121017
  6. PL GRANULATED MEDICINE [Concomitant]
     Indication: NASAL CONGESTION
     Route: 048
     Dates: start: 20130104, end: 20130107
  7. AMLODIPINE BESYLATE. [Concomitant]
     Active Substance: AMLODIPINE BESYLATE
     Indication: HYPERTENSION
     Route: 048
     Dates: start: 20130214
  8. PANTETHINE [Concomitant]
     Active Substance: PANTETHINE
     Route: 048
     Dates: start: 20130314, end: 20140710
  9. BENZETHONIUM CHLORIDE [Concomitant]
     Active Substance: BENZETHONIUM CHLORIDE
     Indication: STOMATITIS
     Route: 065
     Dates: start: 20130613, end: 20140828
  10. ALFACALCIDOL [Concomitant]
     Active Substance: ALFACALCIDOL
     Route: 048
     Dates: start: 20121031, end: 20140710
  11. RHEUM PALMATUM [Concomitant]
     Indication: CONSTIPATION
     Route: 048
     Dates: start: 20121015, end: 20121016
  12. SODIUM PICOSULFATE HYDRATE [Concomitant]
     Indication: CONSTIPATION
     Route: 048
     Dates: start: 20121015, end: 20121031
  13. ACETAMINOPHEN. [Concomitant]
     Active Substance: ACETAMINOPHEN
     Indication: SPINAL COMPRESSION FRACTURE
     Dosage: 10 MILLIGRAM
     Route: 048
     Dates: start: 20121017, end: 20121108
  14. CALCIUM POLYSTYRENE SULFONATE [Concomitant]
     Active Substance: CALCIUM POLYSTYRENE SULFONATE
     Indication: HYPERKALAEMIA
     Dosage: 5 MILLIGRAM
     Route: 048
     Dates: start: 20121121, end: 20121128
  15. LIDOCAINE. [Concomitant]
     Active Substance: LIDOCAINE
     Route: 065
     Dates: start: 20121220, end: 20121220
  16. BENZETHONIUM CHLORIDE [Concomitant]
     Active Substance: BENZETHONIUM CHLORIDE
     Indication: OSTEONECROSIS OF JAW
  17. CALCIUM L-ASPARTATE HYDRATE [Concomitant]
     Active Substance: ASPARTIC ACID
     Indication: OSTEOPOROSIS
     Route: 048
     Dates: start: 20121012, end: 20130313
  18. GLYCERIN. [Concomitant]
     Active Substance: GLYCERIN
     Indication: CONSTIPATION
     Dosage: .5 MILLIGRAM
     Route: 065
     Dates: start: 20121024, end: 20121024
  19. OLIVE OIL [Concomitant]
     Active Substance: OLIVE OIL
     Indication: CONSTIPATION
     Dosage: 75 GRAM
     Route: 065
     Dates: start: 20121024, end: 20121024
  20. ETIZOLAM [Concomitant]
     Active Substance: ETIZOLAM
     Indication: INSOMNIA
     Dosage: .5 MILLILITER
     Route: 048
     Dates: start: 20121031, end: 20140319
  21. INFLUENZA VACCINE [Concomitant]
     Active Substance: INFLUENZA VIRUS VACCINE
     Indication: INFLUENZA IMMUNISATION
     Route: 058
     Dates: start: 20121122, end: 20121122
  22. CYANOCOBALAMIN. [Concomitant]
     Active Substance: CYANOCOBALAMIN
     Indication: CONJUNCTIVOCHALASIS
     Route: 065
     Dates: start: 20130313, end: 20130420
  23. FEBUXOSTAT. [Concomitant]
     Active Substance: FEBUXOSTAT
     Indication: TUMOUR LYSIS SYNDROME
     Route: 048
     Dates: start: 20121017, end: 20121111
  24. FEBUXOSTAT. [Concomitant]
     Active Substance: FEBUXOSTAT
     Route: 048
     Dates: start: 20121112
  25. LEVOCABASTINE HYDROCHLORIDE [Concomitant]
     Active Substance: LEVOCABASTINE HYDROCHLORIDE
     Indication: NASAL CONGESTION
     Route: 065
     Dates: start: 20120608, end: 20140205
  26. RED BLOOD CELLS [Concomitant]
     Active Substance: HUMAN RED BLOOD CELL
     Indication: PRODUCT USED FOR UNKNOWN INDICATION
     Dosage: 2 UNITS
     Route: 041
     Dates: start: 20150309, end: 20150309
  27. RABEPRAZOLE SODIUM. [Concomitant]
     Active Substance: RABEPRAZOLE SODIUM
     Indication: GASTRITIS
     Route: 048
     Dates: start: 20121017
  28. BAKTAR [Concomitant]
     Active Substance: SULFAMETHOXAZOLE\TRIMETHOPRIM
     Route: 048
     Dates: start: 20140224
  29. PL GRANULATED MEDICINE [Concomitant]
     Route: 048
     Dates: start: 20130316, end: 20130323
  30. PANTETHINE [Concomitant]
     Active Substance: PANTETHINE
     Route: 048
     Dates: start: 20150319
  31. SODIUM FERROUS CITRATE [Concomitant]
     Route: 048
     Dates: start: 20141002, end: 20141020
  32. FERROUS SULFATE HYDRATE [Concomitant]
     Indication: NEPHROGENIC ANAEMIA
     Route: 048
     Dates: start: 20141226, end: 20150226
  33. CALONAL [Concomitant]
     Active Substance: ACETAMINOPHEN
     Indication: PRODUCT USED FOR UNKNOWN INDICATION
     Route: 048
     Dates: start: 20130902
  34. RHEUM PALMATUM [Concomitant]
     Dosage: 10 MILLILITER
     Route: 048
     Dates: start: 20121017, end: 20121030
  35. ACETAMINOPHEN. [Concomitant]
     Active Substance: ACETAMINOPHEN
     Indication: CONTUSION
     Route: 048
     Dates: start: 20121107, end: 20121214
  36. PL GRANULATED MEDICINE [Concomitant]
     Route: 048
     Dates: start: 20140215, end: 20140217
  37. SODIUM HYALURONATE [Concomitant]
     Active Substance: HYALURONATE SODIUM
     Indication: CONJUNCTIVOCHALASIS
     Dosage: 105 MILLIGRAM
     Route: 065
     Dates: start: 20130314, end: 20130410
  38. DIMEMORFAN PHOSPHATE [Concomitant]
     Active Substance: DIMEMORFAN PHOSPHATE
     Indication: COUGH
     Route: 048
     Dates: start: 20131017, end: 20131018
  39. MIOPIN [Concomitant]
     Indication: CONJUNCTIVOCHALASIS
     Route: 047
     Dates: start: 20140123
  40. DARBEPOETIN ALFA [Concomitant]
     Active Substance: DARBEPOETIN ALFA
     Indication: NEPHROGENIC ANAEMIA
     Route: 058
     Dates: start: 20140612, end: 20140904
  41. CC-5013 [Suspect]
     Active Substance: LENALIDOMIDE
     Indication: PLASMA CELL MYELOMA
     Route: 048
     Dates: start: 20121022
  42. CC-5013 [Suspect]
     Active Substance: LENALIDOMIDE
     Dosage: 100 MILLIGRAM
     Route: 048
     Dates: start: 20140515, end: 20150305
  43. ASPIRIN. [Concomitant]
     Active Substance: ASPIRIN
     Indication: THROMBOSIS PROPHYLAXIS
  44. DENOSUMAB [Concomitant]
     Active Substance: DENOSUMAB
     Indication: BONE LESION
     Route: 058
     Dates: start: 20121011, end: 20130510
  45. ACETAMINOPHEN. [Concomitant]
     Active Substance: ACETAMINOPHEN
     Route: 048
     Dates: start: 20130302
  46. BAKTAR [Concomitant]
     Active Substance: SULFAMETHOXAZOLE\TRIMETHOPRIM
     Indication: INFECTION PROPHYLAXIS
     Dosage: 60 MILLILITER
     Route: 048
     Dates: start: 20121017, end: 20140217
  47. MOMETASONE FUROATE HYDRATE [Concomitant]
     Indication: NASOPHARYNGITIS
     Route: 065
     Dates: start: 20140208, end: 20140807
  48. MOMETASONE FUROATE HYDRATE [Concomitant]
     Route: 065
     Dates: start: 20150129
  49. PL GRANULATED MEDICINE [Concomitant]
     Indication: NASOPHARYNGITIS
     Route: 048
     Dates: start: 20121226, end: 20121230
  50. DARBEPOETIN ALFA [Concomitant]
     Active Substance: DARBEPOETIN ALFA
     Route: 058
     Dates: start: 20140710, end: 20140710
  51. DARBEPOETIN ALFA [Concomitant]
     Active Substance: DARBEPOETIN ALFA
     Route: 058
     Dates: start: 20141002, end: 20141127
  52. FERRIC OXIDE [Concomitant]
     Active Substance: FERRIC OXIDE RED
     Indication: ANAEMIA
     Route: 041
     Dates: start: 20150210
  53. LIDOCAINE. [Concomitant]
     Active Substance: LIDOCAINE
     Indication: TOOTH LOSS
     Route: 065
     Dates: start: 20121107, end: 20121107
  54. MOMETASONE FUROATE HYDRATE [Concomitant]
     Indication: NASAL CONGESTION
     Route: 065
     Dates: start: 20121003, end: 20130807
  55. PL GRANULATED MEDICINE [Concomitant]
     Indication: UPPER RESPIRATORY TRACT INFECTION
     Route: 048
     Dates: start: 20121220, end: 20121226
  56. PANTETHINE [Concomitant]
     Active Substance: PANTETHINE
     Route: 048
     Dates: start: 20130314, end: 20140712
  57. DEXAMETHASONE. [Concomitant]
     Active Substance: DEXAMETHASONE
     Indication: STOMATITIS
     Route: 062
     Dates: start: 20130411
  58. SODIUM FERROUS CITRATE [Concomitant]
     Indication: NEPHROGENIC ANAEMIA
     Route: 048
     Dates: start: 20140612, end: 20140808
  59. DARBEPOETIN ALFA [Concomitant]
     Active Substance: DARBEPOETIN ALFA
     Route: 058
     Dates: start: 20141226
  60. CC-5013 [Suspect]
     Active Substance: LENALIDOMIDE
     Route: 048
     Dates: start: 20140220
  61. RHEUM PALMATUM [Concomitant]
     Route: 048
     Dates: start: 20121031, end: 20121205
  62. SENNOSIDE [Concomitant]
     Active Substance: SENNOSIDES
     Indication: CONSTIPATION
     Route: 048
     Dates: start: 20121015, end: 20141224
  63. PL GRANULATED MEDICINE [Concomitant]
     Dosage: 100 MILLIGRAM
     Route: 048
     Dates: start: 20140403
  64. PANTETHINE [Concomitant]
     Active Substance: PANTETHINE
     Indication: CONSTIPATION
     Route: 048
     Dates: start: 20121015, end: 20130813
  65. DEXAMETHASONE. [Concomitant]
     Active Substance: DEXAMETHASONE
     Indication: OSTEONECROSIS OF JAW
     Route: 065
     Dates: start: 20150129
  66. DIMEMORFAN PHOSPHATE [Concomitant]
     Active Substance: DIMEMORFAN PHOSPHATE
     Indication: NASOPHARYNGITIS
     Route: 048
     Dates: start: 20140215, end: 20140227
  67. SODIUM FERROUS CITRATE [Concomitant]
     Route: 048
     Dates: start: 20141030, end: 20141226
  68. MAGNESIUM OXIDE. [Concomitant]
     Active Substance: MAGNESIUM OXIDE
     Indication: PRODUCT USED FOR UNKNOWN INDICATION
     Route: 048
     Dates: start: 20150318

REACTIONS (2)
  - Adenocarcinoma of colon [Not Recovered/Not Resolved]
  - Gallbladder adenocarcinoma [Not Recovered/Not Resolved]

NARRATIVE: CASE EVENT DATE: 20150313
